FAERS Safety Report 19882534 (Version 3)
Quarter: 2021Q4

REPORT INFORMATION
  Report Type: Other
  Country: US (occurrence: US)
  Receive Date: 20210924
  Receipt Date: 20211215
  Transmission Date: 20220303
  Serious: Yes (Hospitalization, Other)
  Sender: FDA-Public Use
  Company Number: US-COVIS PHARMA GMBH-2021COV23866

PATIENT
  Age: 29 Year
  Sex: Female
  Weight: 83.536 kg

DRUGS (3)
  1. MAKENA [Suspect]
     Active Substance: HYDROXYPROGESTERONE CAPROATE
     Indication: Premature delivery
     Route: 058
     Dates: end: 20210820
  2. VITAPEARL [Concomitant]
     Indication: Product used for unknown indication
     Route: 048
  3. PROFERRIN-FORTE [Concomitant]
     Indication: Product used for unknown indication
     Route: 048

REACTIONS (5)
  - Preterm premature rupture of membranes [Recovered/Resolved]
  - Premature labour [Recovered/Resolved]
  - Premature delivery [Recovered/Resolved]
  - Uterine contractions during pregnancy [Recovered/Resolved]
  - Diarrhoea [Unknown]

NARRATIVE: CASE EVENT DATE: 20210722
